FAERS Safety Report 7565370-4 (Version None)
Quarter: 2011Q2

REPORT INFORMATION
  Report Type: 
  Country: None (occurrence: None)
  Receive Date: 20110623
  Receipt Date: 20110620
  Transmission Date: 20111010
  Serious: No
  Sender: FDA-Public Use
  Company Number: US-BIOGENIDEC-2011BI003719

PATIENT
  Sex: Female

DRUGS (1)
  1. TYSABRI [Suspect]
     Indication: MULTIPLE SCLEROSIS
     Route: 042
     Dates: start: 20100223

REACTIONS (6)
  - DYSSTASIA [None]
  - BALANCE DISORDER [None]
  - FALL [None]
  - MALAISE [None]
  - ALOPECIA [None]
  - DRUG INEFFECTIVE [None]
